FAERS Safety Report 18542396 (Version 2)
Quarter: 2020Q4

REPORT INFORMATION
  Report Type: Spontaneous
  Country: US (occurrence: US)
  Receive Date: 20201124
  Receipt Date: 20201130
  Transmission Date: 20210114
  Serious: Yes (Other)
  Sender: FDA-Public Use
  Company Number: US-BEH-2020125363

PATIENT
  Age: 63 Year
  Sex: Female

DRUGS (1)
  1. HIZENTRA [Suspect]
     Active Substance: HUMAN IMMUNOGLOBULIN G
     Indication: IMMUNODEFICIENCY COMMON VARIABLE
     Dosage: 10 GRAM, QW
     Route: 058
     Dates: start: 20200218

REACTIONS (8)
  - Cough [Unknown]
  - COVID-19 [Unknown]
  - Pain [Unknown]
  - Rhinorrhoea [Unknown]
  - Pyrexia [Unknown]
  - Headache [Unknown]
  - Dyspnoea [Unknown]
  - Diarrhoea [Unknown]

NARRATIVE: CASE EVENT DATE: 20201023
